FAERS Safety Report 12518297 (Version 1)
Quarter: 2016Q2

REPORT INFORMATION
  Report Type: Spontaneous
  Country: CA (occurrence: CA)
  Receive Date: 20160630
  Receipt Date: 20160630
  Transmission Date: 20160815
  Serious: Yes (Other)
  Sender: FDA-Public Use
  Company Number: CA-WARNER CHILCOTT, LLC-1054430

PATIENT
  Age: 76 Year
  Sex: Female

DRUGS (1)
  1. ATELVIA [Suspect]
     Active Substance: RISEDRONATE SODIUM
     Indication: OSTEOPOROSIS
     Route: 048

REACTIONS (4)
  - Blood urine present [Recovered/Resolved]
  - Haematochezia [Recovered/Resolved]
  - Haemorrhage [Recovered/Resolved]
  - Malaise [Recovered/Resolved]
